FAERS Safety Report 9836020 (Version 2)
Quarter: 2014Q2

REPORT INFORMATION
  Report Type: Spontaneous
  Country: IT (occurrence: IT)
  Receive Date: 20140122
  Receipt Date: 20140417
  Transmission Date: 20141212
  Serious: Yes (Hospitalization)
  Sender: FDA-Public Use
  Company Number: IT-BRISTOL-MYERS SQUIBB COMPANY-20034302

PATIENT
  Age: 86 Year
  Sex: Male

DRUGS (5)
  1. COUMADIN TABS 5 MG [Suspect]
     Indication: ATRIAL FIBRILLATION
     Dosage: INTERRUPTED: 03DEC13, RESTARTED ON 18DEC2013
     Route: 048
     Dates: start: 20080101, end: 20131218
  2. PANTOPRAZOLE [Interacting]
     Indication: GASTRITIS PROPHYLAXIS
     Route: 048
  3. ENALAPRIL [Concomitant]
     Route: 048
  4. FUROSEMIDE [Concomitant]
     Route: 048
  5. BISOPROLOL HEMIFUMARATE [Concomitant]
     Route: 048

REACTIONS (3)
  - Hypocoagulable state [Recovered/Resolved]
  - Fall [Unknown]
  - Drug interaction [Unknown]
